FAERS Safety Report 17835397 (Version 1)
Quarter: 2020Q2

REPORT INFORMATION
  Report Type: Spontaneous
  Country: SI (occurrence: SI)
  Receive Date: 20200528
  Receipt Date: 20200528
  Transmission Date: 20200714
  Serious: Yes (Hospitalization)
  Sender: FDA-Public Use
  Company Number: SI-JNJFOC-20200532963

PATIENT
  Age: 73 Year
  Sex: Male

DRUGS (8)
  1. DUROGESIC [Suspect]
     Active Substance: FENTANYL
     Indication: CANCER PAIN
     Dosage: 50 MCG/HR
     Route: 062
     Dates: start: 20120628, end: 20120728
  2. RETAFER [Concomitant]
     Indication: PRODUCT USED FOR UNKNOWN INDICATION
  3. LANITOP [Concomitant]
     Active Substance: METILDIGOXIN
     Indication: PRODUCT USED FOR UNKNOWN INDICATION
  4. CORYOL [Concomitant]
     Indication: PRODUCT USED FOR UNKNOWN INDICATION
  5. ACIPAN [Concomitant]
     Active Substance: PANTOPRAZOLE SODIUM
     Indication: PRODUCT USED FOR UNKNOWN INDICATION
  6. AMOKSIKLAV [Concomitant]
     Active Substance: AMOXICILLIN\CLAVULANATE POTASSIUM
     Indication: WOUND
  7. LASIX [Concomitant]
     Active Substance: FUROSEMIDE
     Indication: PRODUCT USED FOR UNKNOWN INDICATION
     Dosage: IN THE MORNINGS
  8. CLEXANE [Concomitant]
     Active Substance: ENOXAPARIN SODIUM
     Indication: PRODUCT USED FOR UNKNOWN INDICATION

REACTIONS (4)
  - Delirium [Recovered/Resolved]
  - Restlessness [Recovered/Resolved]
  - Hallucination [Recovered/Resolved]
  - Delusion [Recovered/Resolved]

NARRATIVE: CASE EVENT DATE: 20120728
